FAERS Safety Report 9092807 (Version 1)
Quarter: 2013Q1

REPORT INFORMATION
  Report Type: Spontaneous
  Country: US (occurrence: CA)
  Receive Date: 20130201
  Receipt Date: 20130201
  Transmission Date: 20140127
  Serious: No
  Sender: FDA-Public Use
  Company Number: US-ABBOTT-13P-163-1032415-00

PATIENT
  Sex: Female

DRUGS (9)
  1. HUMIRA [Suspect]
     Indication: CROHN^S DISEASE
  2. REMICADE [Concomitant]
     Indication: PRODUCT USED FOR UNKNOWN INDICATION
  3. ENSURE [Concomitant]
     Indication: NUTRITIONAL SUPPLEMENTATION
  4. ANTIBIOTICS [Concomitant]
     Indication: PRODUCT USED FOR UNKNOWN INDICATION
  5. MORPHINE [Concomitant]
     Indication: PAIN
  6. 5 ASA [Concomitant]
     Indication: PRODUCT USED FOR UNKNOWN INDICATION
  7. METHOTREXATE [Concomitant]
     Indication: PRODUCT USED FOR UNKNOWN INDICATION
  8. PREDNISONE [Concomitant]
     Indication: PRODUCT USED FOR UNKNOWN INDICATION
  9. BEUDECONIDE [Concomitant]
     Indication: PRODUCT USED FOR UNKNOWN INDICATION

REACTIONS (16)
  - Aphthous stomatitis [Unknown]
  - Blood iron decreased [Unknown]
  - Fear [Unknown]
  - Drug ineffective [Unknown]
  - Malaise [Unknown]
  - Diarrhoea [Unknown]
  - Abscess [Unknown]
  - Pain [Unknown]
  - Oral herpes [Unknown]
  - Dysmenorrhoea [Unknown]
  - Hypophagia [Unknown]
  - Partner stress [Unknown]
  - Mental impairment [Unknown]
  - Thinking abnormal [Unknown]
  - Back pain [Unknown]
  - Rectal tenesmus [Unknown]
